FAERS Safety Report 8271754-1 (Version None)
Quarter: 2012Q2

REPORT INFORMATION
  Report Type: 
  Country: None (occurrence: None)
  Receive Date: 20120410
  Receipt Date: 20120403
  Transmission Date: 20120825
  Serious: Yes (Hospitalization)
  Sender: FDA-Public Use
  Company Number: JP-MERCK-1202USA01084

PATIENT
  Age: 83 Year
  Sex: Female
  Weight: 45 kg

DRUGS (5)
  1. SINGULAIR [Suspect]
     Indication: ASTHMA
     Route: 048
     Dates: start: 20120113
  2. GARENOXACIN MESYLATE [Suspect]
     Route: 048
     Dates: start: 20120115, end: 20120118
  3. PREDNISOLONE [Concomitant]
     Indication: ASTHMA
     Route: 048
     Dates: start: 20120107, end: 20120109
  4. GARENOXACIN MESYLATE [Suspect]
     Indication: BRONCHITIS
     Route: 048
     Dates: start: 20120107, end: 20120108
  5. HOKUNALIN [Concomitant]
     Indication: ASTHMA
     Dosage: DIVIDED DOSE FREQUENCY U
     Route: 065
     Dates: start: 20120107, end: 20120114

REACTIONS (3)
  - PYREXIA [None]
  - RASH [None]
  - DRUG ERUPTION [None]
